FAERS Safety Report 7501765-2 (Version None)
Quarter: 2011Q2

REPORT INFORMATION
  Report Type: 
  Country: None (occurrence: None)
  Receive Date: 20110523
  Receipt Date: 20110523
  Transmission Date: 20111010
  Serious: Yes (Hospitalization)
  Sender: FDA-Public Use
  Company Number: None

PATIENT
  Age: 83 Year
  Sex: Male
  Weight: 89 kg

DRUGS (9)
  1. RAMIPRIL [Concomitant]
  2. FINASTERIDE [Concomitant]
  3. KLOR-CON [Concomitant]
  4. NABUMETONE [Concomitant]
  5. METFORMIN HCL [Suspect]
     Indication: DIABETES MELLITUS
     Dosage: 500MG TID PO CHRONIC W/RECENT TREMORS
     Route: 048
  6. DETROL LA [Concomitant]
  7. GLYBURIDE [Suspect]
     Indication: DIABETES MELLITUS
     Dosage: 5 MG DAILY PO CHRONIC
     Route: 048
  8. AVANDIA [Suspect]
     Indication: DIABETES MELLITUS
     Dosage: DAILY PO CHRONIC
     Route: 048
  9. TAMSULOSIN HCL [Concomitant]

REACTIONS (2)
  - INCORRECT DOSE ADMINISTERED [None]
  - HYPOGLYCAEMIA [None]
